FAERS Safety Report 12996005 (Version 1)
Quarter: 2016Q4

REPORT INFORMATION
  Report Type: Spontaneous
  Country: US (occurrence: US)
  Receive Date: 20161202
  Receipt Date: 20161202
  Transmission Date: 20170207
  Serious: Yes (Other)
  Sender: FDA-Public Use
  Company Number: US-SAOL THERAPEUTICS-2016SAO01174

PATIENT
  Age: 80 Year
  Sex: Female

DRUGS (3)
  1. LIORESAL [Suspect]
     Active Substance: BACLOFEN
     Dosage: 0.487 ?G, \DAY
     Dates: start: 20161021
  2. MORPHINE [Suspect]
     Active Substance: MORPHINE
     Dosage: 0.0156 MG, \DAY
     Dates: start: 20161021
  3. SUFENTA [Suspect]
     Active Substance: SUFENTANIL CITRATE
     Dosage: 0.062 ?G, \DAY
     Dates: start: 20161021

REACTIONS (3)
  - Wound dehiscence [Not Recovered/Not Resolved]
  - Implant site discharge [Not Recovered/Not Resolved]
  - Wound infection staphylococcal [Not Recovered/Not Resolved]

NARRATIVE: CASE EVENT DATE: 2016
